FAERS Safety Report 12019421 (Version 1)
Quarter: 2016Q1

REPORT INFORMATION
  Report Type: Report from Study
  Country: US (occurrence: US)
  Receive Date: 20160206
  Receipt Date: 20160206
  Transmission Date: 20160526
  Serious: Yes (Other)
  Sender: FDA-Public Use
  Company Number: US-ABBVIE-15K-163-1461513-00

PATIENT
  Sex: Female
  Weight: 92.16 kg

DRUGS (7)
  1. ATORVASTATIN [Concomitant]
     Active Substance: ATORVASTATIN
     Indication: BLOOD CHOLESTEROL INCREASED
  2. CEPHALEXIN. [Concomitant]
     Active Substance: CEPHALEXIN
     Indication: CYSTITIS INTERSTITIAL
  3. GABAPENTIN. [Concomitant]
     Active Substance: GABAPENTIN
     Indication: CYSTITIS INTERSTITIAL
  4. HUMIRA [Suspect]
     Active Substance: ADALIMUMAB
     Indication: PSORIASIS
     Route: 058
     Dates: start: 2014, end: 201504
  5. MYRBETRIQ [Concomitant]
     Active Substance: MIRABEGRON
     Indication: CYSTITIS INTERSTITIAL
  6. TROSPIUM CHLORIDE. [Concomitant]
     Active Substance: TROSPIUM CHLORIDE
     Indication: CYSTITIS INTERSTITIAL
  7. LYRICA [Concomitant]
     Active Substance: PREGABALIN
     Indication: FIBROMYALGIA

REACTIONS (1)
  - Pelvic pain [Not Recovered/Not Resolved]
